FAERS Safety Report 23094083 (Version 4)
Quarter: 2024Q1

REPORT INFORMATION
  Report Type: Report from Study
  Country: US (occurrence: US)
  Receive Date: 20231023
  Receipt Date: 20240216
  Transmission Date: 20240410
  Serious: Yes (Other)
  Sender: FDA-Public Use
  Company Number: US-ABBVIE-5456320

PATIENT
  Age: 61 Year
  Sex: Female
  Weight: 66 kg

DRUGS (28)
  1. HUMIRA [Suspect]
     Active Substance: ADALIMUMAB
     Indication: Product used for unknown indication
     Route: 058
  2. RINVOQ [Suspect]
     Active Substance: UPADACITINIB
     Indication: Psoriatic arthropathy
     Dosage: TAKE ONE TABLET BY MOUTH DAILY. SWALLOW TABLET WHOLE; DO NOT CRUSH, SPLIT, OR CHEW?FORM STRENGTH ...
     Route: 048
     Dates: start: 20230102, end: 20231010
  3. CHOLECALCIFEROL [Concomitant]
     Active Substance: CHOLECALCIFEROL
     Indication: Product used for unknown indication
     Dosage: 50 MCG (2,000 UNIT) TABLET
     Route: 048
  4. CYCLOBENZAPRINE [Concomitant]
     Active Substance: CYCLOBENZAPRINE
     Indication: Product used for unknown indication
     Dosage: FREQUENCY TEXT: 1 TAB BY MOUTH 3 TIMES DAILY AS NEEDED
     Route: 048
  5. METHIMAZOLE [Concomitant]
     Active Substance: METHIMAZOLE
     Indication: Product used for unknown indication
     Dosage: FREQUENCY TEXT: 1 TABLET BY MOUTH DAILY. MON- THUR. 5MG
     Route: 048
  6. METHIMAZOLE [Concomitant]
     Active Substance: METHIMAZOLE
     Indication: Product used for unknown indication
     Dosage: FREQUENCY TEXT: FRIDAY- SUNDAY 2.5
     Route: 048
  7. METOPROLOL SUCCINATE [Concomitant]
     Active Substance: METOPROLOL SUCCINATE
     Indication: Product used for unknown indication
     Dosage: EXTENDED RELEASE 24 HR TABLET?FORM STRENGTH- 25 MG
     Route: 048
  8. METOPROLOL TARTRATE [Concomitant]
     Active Substance: METOPROLOL TARTRATE
     Indication: Product used for unknown indication
     Route: 048
  9. FAMOTIDINE [Concomitant]
     Active Substance: FAMOTIDINE
     Indication: Product used for unknown indication
     Dosage: FREQUENCY TEXT: 1 TABLET BY MOUTH AT BEDTIME
     Route: 048
  10. GABAPENTIN [Concomitant]
     Active Substance: GABAPENTIN
     Indication: Product used for unknown indication
     Route: 048
  11. ONDANSETRON [Concomitant]
     Active Substance: ONDANSETRON
     Indication: Nausea
     Dosage: FREQUENCY TEXT: 1 TAB ON TONGUE TO DISSOLVE IF NEEDED ?FREQUENCY TEXT: 1TAB EVERY 8 HR AS NEEDED?...
     Route: 048
  12. TOPIRAMATE [Concomitant]
     Active Substance: TOPIRAMATE
     Indication: Product used for unknown indication
     Route: 048
  13. DOCUSATE SODIUM [Concomitant]
     Active Substance: DOCUSATE SODIUM
     Indication: Product used for unknown indication
     Dosage: FREQUENCY TEXT: 1 CAPSULE BY MOUTH 2 TIMES DAILY.
     Route: 048
  14. SIMETHICONE (DIMETHICONE) [Concomitant]
     Active Substance: DIMETHICONE
     Indication: Product used for unknown indication
     Dosage: FORM STRENGTH WAS 80 MILLIGRAM.
     Route: 048
  15. VERAPAMIL [Concomitant]
     Active Substance: VERAPAMIL HYDROCHLORIDE
     Indication: Product used for unknown indication
     Dosage: 240 MG 24 HR EXTENDED RELEASE CAPSULE
  16. POLYETHYLENE GLYCOL [Concomitant]
     Active Substance: POLYETHYLENE GLYCOL
     Indication: Product used for unknown indication
     Dosage: PREPARE 1 PACKET ACCORDING TO PACKAGE INSTRUCTIONS AND TAKE BY MOUTH DAILY.?FORM STRENGTH- 17 MG?...
  17. ESTRADIOL [Concomitant]
     Active Substance: ESTRADIOL
     Indication: Product used for unknown indication
     Dosage: (0.1 MG/GRAM) VAGINAL CREAM?0.01 %
  18. ASPIRIN [Concomitant]
     Active Substance: ASPIRIN
     Indication: Product used for unknown indication
     Dosage: DELAYED RELEASE ENTERIC COATED TABLET
     Route: 048
  19. ACETAMINOPHEN [Concomitant]
     Active Substance: ACETAMINOPHEN
     Indication: Product used for unknown indication
     Dosage: FREQUENCY TEXT: CHEW 1 TABLET EVERY 8 HOURS AS NEEDED
  20. OMEPRAZOLE [Concomitant]
     Active Substance: OMEPRAZOLE
     Indication: Product used for unknown indication
     Dosage: 40 MG DELAYED RELEASE CAPSULE
  21. HYOSCYAMINE [Concomitant]
     Active Substance: HYOSCYAMINE
     Indication: Product used for unknown indication
     Dosage: 0.125 MG SUBLINGUAL TABLET PLACE ONE TABLET UNDER THE TONGUE THREE TIMES A DAY AS DIRECTED
  22. DICLOFENAC [Concomitant]
     Active Substance: DICLOFENAC
     Indication: Product used for unknown indication
     Dosage: FREQUENCY : AS NEEDED
  23. ROSUVASTATIN [Concomitant]
     Active Substance: ROSUVASTATIN
     Indication: Product used for unknown indication
     Dosage: FREQUENCY TEXT: 1 TAB AT BEDTIME
     Route: 048
  24. CLOBETASOL [Concomitant]
     Active Substance: CLOBETASOL
     Indication: Product used for unknown indication
     Dosage: APPLY TO AFFECTED AREA(S) EXTERNALLY THREE TIMES A WEEK FOR 30 DAYS?EMOLLIENT 0.05 % CREAM
  25. PANTOPRAZOLE [Concomitant]
     Active Substance: PANTOPRAZOLE
     Indication: Product used for unknown indication
     Dosage: 40 MG DELAYED RELEASE TABLET?FREQUENCY TEXT: 1 TAB AT BEDTIME
  26. Omega 3 epa dha [Concomitant]
     Indication: Product used for unknown indication
     Dosage: 120 MG-400 MG -4BILLION CELL PER CAPSULE?FREQUENCY TEXT: 1 CAP DAILY 4000 UNITS DAILY
  27. REMICADE [Concomitant]
     Active Substance: INFLIXIMAB
     Indication: Product used for unknown indication
  28. VITAMIN D3 [Concomitant]
     Active Substance: CHOLECALCIFEROL
     Indication: Product used for unknown indication
     Dosage: 50 MCG (2,000 UNIT) TABLET
     Route: 048

REACTIONS (6)
  - Renal cancer [Recovered/Resolved]
  - Breast mass [Not Recovered/Not Resolved]
  - Thyroid mass [Not Recovered/Not Resolved]
  - Pharyngeal mass [Not Recovered/Not Resolved]
  - Bladder cancer [Not Recovered/Not Resolved]
  - Pulmonary mass [Unknown]

NARRATIVE: CASE EVENT DATE: 20230915
